FAERS Safety Report 21134579 (Version 1)
Quarter: 2022Q3

REPORT INFORMATION
  Report Type: Spontaneous
  Country: US (occurrence: US)
  Receive Date: 20220727
  Receipt Date: 20220727
  Transmission Date: 20221026
  Serious: No
  Sender: FDA-Public Use
  Company Number: US-SA-2022SA274837

PATIENT
  Age: 7 Year
  Sex: Male

DRUGS (3)
  1. CLOBAZAM [Suspect]
     Active Substance: CLOBAZAM
     Indication: Myoclonic epilepsy
     Dosage: UNK
     Route: 065
  2. LAMOTRIGINE [Suspect]
     Active Substance: LAMOTRIGINE
     Indication: Myoclonic epilepsy
     Dosage: 1.8 MG/KG, QD
     Route: 065
  3. LAMOTRIGINE [Suspect]
     Active Substance: LAMOTRIGINE
     Dosage: 3.6 MG/KG, QD
     Route: 065

REACTIONS (1)
  - Off label use [Unknown]
